FAERS Safety Report 26027286 (Version 3)
Quarter: 2025Q4

REPORT INFORMATION
  Report Type: Spontaneous
  Country: AR (occurrence: AR)
  Receive Date: 20251111
  Receipt Date: 20251209
  Transmission Date: 20260118
  Serious: Yes (Other)
  Sender: SANDOZ
  Company Number: AR-002147023-NVSC2025AR085240

PATIENT
  Age: 57 Year
  Sex: Female

DRUGS (5)
  1. FULVESTRANT [Suspect]
     Active Substance: FULVESTRANT
     Indication: Breast cancer metastatic
     Dosage: 1 DOSAGE FORM (INJECTION), QMO
     Route: 065
     Dates: start: 20250829, end: 20251025
  2. KISQALI [Suspect]
     Active Substance: RIBOCICLIB SUCCINATE
     Indication: Breast cancer metastatic
     Dosage: 600 MG, QD
     Route: 048
     Dates: start: 20240829, end: 20251116
  3. ZOLEDRONIC ACID [Suspect]
     Active Substance: ZOLEDRONIC ACID
     Indication: Breast cancer metastatic
     Dosage: UNK
     Route: 065
     Dates: start: 20240829
  4. BISOPROLOL FUMARATE [Concomitant]
     Active Substance: BISOPROLOL FUMARATE
     Indication: Product used for unknown indication
     Dosage: 1 DOSAGE FORM (5 MG TABLET) (STARTED  APPROX IN 2021)
     Route: 065
     Dates: start: 2021
  5. ERYTHROPOIETIN [Concomitant]
     Active Substance: ERYTHROPOIETIN
     Indication: Product used for unknown indication
     Dosage: 1 DOSAGE FORM (1 APPLICATION OF 4000 U) (STARTED 8 MONTHS AGO)
     Route: 065

REACTIONS (14)
  - Metastases to bone [Unknown]
  - Metastases to liver [Unknown]
  - Type 2 diabetes mellitus [Unknown]
  - Joint injury [Unknown]
  - Impatience [Unknown]
  - Nervousness [Unknown]
  - Arthralgia [Unknown]
  - Pain [Unknown]
  - Elastofibroma [Unknown]
  - Inflammation [Unknown]
  - Anaemia [Unknown]
  - Hepatic lesion [Unknown]
  - Bone lesion [Unknown]
  - Drug ineffective [Unknown]

NARRATIVE: CASE EVENT DATE: 20251023
